FAERS Safety Report 11336839 (Version 1)
Quarter: 2015Q3

REPORT INFORMATION
  Report Type: Other
  Country: GB (occurrence: GB)
  Receive Date: 20150804
  Receipt Date: 20150804
  Transmission Date: 20151125
  Serious: Yes (Hospitalization)
  Sender: FDA-Public Use
  Company Number: GB-MYLANLABS-2015M1025043

PATIENT

DRUGS (3)
  1. VENTOLIN [Suspect]
     Active Substance: ALBUTEROL SULFATE
     Indication: ASTHMA
     Dosage: UNK
  2. SALBUTAMOL [Suspect]
     Active Substance: ALBUTEROL
     Dosage: UNK
  3. SERETIDE [Suspect]
     Active Substance: FLUTICASONE FUROATE\SALMETEROL XINAFOATE
     Indication: ASTHMA
     Dosage: 1 DF, BID
     Route: 055

REACTIONS (3)
  - Asthma [Recovered/Resolved]
  - Chest discomfort [Unknown]
  - Stress [Unknown]
